FAERS Safety Report 18670204 (Version 2)
Quarter: 2021Q1

REPORT INFORMATION
  Report Type: Spontaneous
  Country: DE (occurrence: DE)
  Receive Date: 20201228
  Receipt Date: 20210104
  Transmission Date: 20210419
  Serious: Yes (Other)
  Sender: FDA-Public Use
  Company Number: DE-PFIZER INC-2020508311

PATIENT
  Sex: Female

DRUGS (1)
  1. TAVOR EXPIDET [Suspect]
     Active Substance: LORAZEPAM
     Indication: AGITATION
     Dosage: UNK, AS NEEDED

REACTIONS (2)
  - Arrhythmia [Recovered/Resolved]
  - Heart rate increased [Recovered/Resolved]
